FAERS Safety Report 21191461 (Version 1)
Quarter: 2022Q3

REPORT INFORMATION
  Report Type: Spontaneous
  Country: US (occurrence: US)
  Receive Date: 20220809
  Receipt Date: 20220809
  Transmission Date: 20221026
  Serious: No
  Sender: FDA-Public Use
  Company Number: US-JOURNEY MEDICAL CORPORATION-2022JNY00022

PATIENT
  Age: 35 Year
  Sex: Female
  Weight: 52.163 kg

DRUGS (5)
  1. QBREXZA [Suspect]
     Active Substance: GLYCOPYRRONIUM TOSYLATE
     Indication: Hyperhidrosis
     Dosage: 1 DOSAGE FORM, 1X/DAY AT BEDTIME, TO AFFECTED AREA
     Route: 061
     Dates: start: 20220212, end: 20220216
  2. QBREXZA [Suspect]
     Active Substance: GLYCOPYRRONIUM TOSYLATE
     Dosage: 1 DOSAGE FORM, 1X/DAY AT BEDTIME, TO AFFECTED AREA
     Route: 061
     Dates: start: 20220218
  3. UNSPECIFIED NIGHT TIME MEDICATION FOR NARCOLEPSY [Concomitant]
     Indication: Narcolepsy
  4. UNSPECIFIED MULTIVITAMINS [Concomitant]
  5. UNSPECIFIED SLEEPING MEDICATION [Concomitant]

REACTIONS (6)
  - Photophobia [Recovered/Resolved]
  - Nausea [Recovered/Resolved]
  - Mydriasis [Recovered/Resolved]
  - Vision blurred [Recovered/Resolved]
  - Headache [Recovered/Resolved]
  - Accidental exposure to product [Recovered/Resolved]

NARRATIVE: CASE EVENT DATE: 20210216
